FAERS Safety Report 14951063 (Version 1)
Quarter: 2018Q2

REPORT INFORMATION
  Report Type: Spontaneous
  Country: US (occurrence: US)
  Receive Date: 20180508
  Receipt Date: 20180508
  Transmission Date: 20180711
  Serious: Yes (Other)
  Sender: FDA-Public Use
  Company Number: None

PATIENT
  Age: 34 Year
  Sex: Female
  Weight: 72 kg

DRUGS (2)
  1. SPIRONOLACTONE 50MG TABS [Suspect]
     Active Substance: SPIRONOLACTONE
     Indication: ACNE
     Dosage: ?          QUANTITY:1 TABLET(S);?
     Route: 048
     Dates: start: 20180103, end: 20180418
  2. DOXYCYCLINE. [Concomitant]
     Active Substance: DOXYCYCLINE

REACTIONS (6)
  - Dysuria [None]
  - Rash erythematous [None]
  - Malaise [None]
  - Product substitution issue [None]
  - Blister [None]
  - Skin exfoliation [None]

NARRATIVE: CASE EVENT DATE: 20180503
